FAERS Safety Report 8015747-8 (Version None)
Quarter: 2011Q4

REPORT INFORMATION
  Report Type: 
  Country: None (occurrence: None)
  Receive Date: 20111230
  Receipt Date: 20111228
  Transmission Date: 20120403
  Serious: Yes (Death, Hospitalization)
  Sender: FDA-Public Use
  Company Number: PHEH2011US07970

PATIENT
  Sex: Male

DRUGS (1)
  1. TOBI [Suspect]
     Indication: LUNG INFECTION PSEUDOMONAL
     Dosage: 300 MG, BID, 28 DAYS ON AND 28 DAYS OFF
     Dates: start: 20110705, end: 20111201

REACTIONS (2)
  - CHRONIC OBSTRUCTIVE PULMONARY DISEASE [None]
  - DEATH [None]
